FAERS Safety Report 6859906-6 (Version None)
Quarter: 2010Q3

REPORT INFORMATION
  Report Type: 
  Country: None (occurrence: None)
  Receive Date: 20100720
  Receipt Date: 20100712
  Transmission Date: 20110219
  Serious: Yes (Death, Hospitalization)
  Sender: FDA-Public Use
  Company Number: GR-MPIJNJ-2010-02887

PATIENT

DRUGS (1)
  1. VELCADE [Suspect]
     Indication: NON-SMALL CELL LUNG CANCER
     Dosage: 2.0 MG, UNK
     Route: 042
     Dates: start: 20100520

REACTIONS (3)
  - CHEST PAIN [None]
  - DEATH [None]
  - DYSPNOEA [None]
